FAERS Safety Report 9417037 (Version 2)
Quarter: 2013Q3

REPORT INFORMATION
  Report Type: Spontaneous
  Country: JP (occurrence: JP)
  Receive Date: 20130724
  Receipt Date: 20130805
  Transmission Date: 20140515
  Serious: Yes (Disabling)
  Sender: FDA-Public Use
  Company Number: JP-ROCHE-1252476

PATIENT
  Sex: Male
  Weight: 1.37 kg

DRUGS (1)
  1. ESPO [Suspect]
     Indication: ANAEMIA NEONATAL
     Dosage: UNCERTAIN DOSAGE AND 66 THE 57TH - AFTER ONE^S BIRTH
     Route: 042

REACTIONS (2)
  - Retinopathy of prematurity [Unknown]
  - Retinal detachment [Unknown]
